FAERS Safety Report 9242865 (Version 1)
Quarter: 2013Q2

REPORT INFORMATION
  Report Type: Spontaneous
  Country: DE (occurrence: DE)
  Receive Date: 20130419
  Receipt Date: 20130419
  Transmission Date: 20140414
  Serious: Yes (Life-Threatening, Hospitalization)
  Sender: FDA-Public Use
  Company Number: DE-CELGENEUS-062-21880-12101086

PATIENT
  Age: 69 Year
  Sex: Male
  Weight: 75.4 kg

DRUGS (9)
  1. REVLIMID [Suspect]
     Indication: PLASMA CELL MYELOMA
     Dosage: 25 MILLIGRAM
     Route: 048
     Dates: start: 20120521, end: 20120828
  2. REVLIMID [Suspect]
     Dosage: 25 MILLIGRAM
     Route: 048
     Dates: start: 20120924, end: 20121005
  3. REVLIMID [Suspect]
     Dosage: 25 MILLIGRAM
     Route: 048
     Dates: start: 20121014
  4. DEXAMETHASONE [Suspect]
     Indication: PLASMA CELL MYELOMA
     Route: 048
     Dates: start: 20120521, end: 20120828
  5. DEXAMETHASONE [Suspect]
     Route: 048
     Dates: start: 20120924, end: 20121005
  6. DEXAMETHASONE [Suspect]
     Route: 048
     Dates: start: 20121014
  7. BENDAMUSTINE [Suspect]
     Indication: PLASMA CELL MYELOMA
     Route: 041
     Dates: start: 20120521, end: 20120828
  8. BENDAMUSTINE [Suspect]
     Route: 041
     Dates: start: 20120924, end: 20121005
  9. BENDAMUSTINE [Suspect]
     Dosage: 150 MILLIGRAM
     Route: 041
     Dates: start: 20121014, end: 20121023

REACTIONS (4)
  - Lymphopenia [Recovered/Resolved]
  - Leukopenia [Recovered/Resolved]
  - Neutropenia [Recovered/Resolved]
  - Pneumonia [Recovered/Resolved]
